FAERS Safety Report 22108099 (Version 1)
Quarter: 2023Q1

REPORT INFORMATION
  Report Type: Spontaneous
  Country: US (occurrence: US)
  Receive Date: 20230317
  Receipt Date: 20230317
  Transmission Date: 20230417
  Serious: No
  Sender: FDA-Public Use
  Company Number: US-SA-SAC20230315001012

PATIENT
  Sex: Female
  Weight: 64.86 kg

DRUGS (4)
  1. DUPIXENT [Suspect]
     Active Substance: DUPILUMAB
     Indication: Dermatitis atopic
     Dosage: 600 MG, 1X
     Route: 058
  2. DUPIXENT [Suspect]
     Active Substance: DUPILUMAB
     Indication: Psoriatic arthropathy
     Dosage: 300 MG, Q15D
     Route: 058
  3. HUMIRA [Concomitant]
     Active Substance: ADALIMUMAB
     Dosage: UNK
  4. TALTZ [Concomitant]
     Active Substance: IXEKIZUMAB
     Indication: Arthritis
     Dosage: UNK

REACTIONS (6)
  - Pain in extremity [Unknown]
  - Eczema weeping [Unknown]
  - Skin fissures [Unknown]
  - Peripheral swelling [Unknown]
  - Pruritus [Unknown]
  - Product use in unapproved indication [Unknown]
